FAERS Safety Report 12912272 (Version 3)
Quarter: 2017Q1

REPORT INFORMATION
  Report Type: Spontaneous
  Country: US (occurrence: US)
  Receive Date: 20161104
  Receipt Date: 20170110
  Transmission Date: 20170428
  Serious: No
  Sender: FDA-Public Use
  Company Number: US-009507513-1610USA016922

PATIENT
  Age: 24 Year
  Sex: Female
  Weight: 107.48 kg

DRUGS (1)
  1. NEXPLANON [Suspect]
     Active Substance: ETONOGESTREL
     Indication: CONTRACEPTION
     Dosage: 1 IMPLANT
     Route: 059
     Dates: start: 20160928, end: 20161026

REACTIONS (5)
  - Acne [Not Recovered/Not Resolved]
  - Implant site pruritus [Recovering/Resolving]
  - Implant site papules [Not Recovered/Not Resolved]
  - Implant site rash [Not Recovered/Not Resolved]
  - Implant site erythema [Not Recovered/Not Resolved]

NARRATIVE: CASE EVENT DATE: 2016
